FAERS Safety Report 13082276 (Version 2)
Quarter: 2017Q1

REPORT INFORMATION
  Report Type: Report from Study
  Country: US (occurrence: US)
  Receive Date: 20170103
  Receipt Date: 20170323
  Transmission Date: 20170428
  Serious: Yes (Death)
  Sender: FDA-Public Use
  Company Number: US-PFIZER INC-2016604782

PATIENT

DRUGS (3)
  1. IRINOTECAN HCL [Suspect]
     Active Substance: IRINOTECAN HYDROCHLORIDE
     Indication: METASTATIC NEOPLASM
     Dosage: 80 MG/M2, ON DAY 1
  2. FLAVOPIRIDOL [Suspect]
     Active Substance: ALVOCIDIB
     Indication: METASTATIC NEOPLASM
     Dosage: 30 MG/M2, ON DAY 2
  3. GEMCITABINE HYDROCHLORIDE. [Suspect]
     Active Substance: GEMCITABINE HYDROCHLORIDE
     Indication: METASTATIC NEOPLASM
     Dosage: 800 MG/M2, ON DAY 1

REACTIONS (1)
  - Neutropenic sepsis [Fatal]
